FAERS Safety Report 24338537 (Version 4)
Quarter: 2025Q3

REPORT INFORMATION
  Report Type: Report from Study
  Country: GB (occurrence: GB)
  Receive Date: 20240919
  Receipt Date: 20250808
  Transmission Date: 20251021
  Serious: Yes (Other)
  Sender: TEVA
  Company Number: GB-TEVA-VS-3244090

PATIENT
  Age: 30 Year
  Sex: Male

DRUGS (1)
  1. COPAXONE [Suspect]
     Active Substance: GLATIRAMER ACETATE
     Indication: Multiple sclerosis
     Route: 065
     Dates: start: 20240501

REACTIONS (9)
  - Dyspnoea [Recovering/Resolving]
  - Flushing [Recovering/Resolving]
  - Tremor [Unknown]
  - Vomiting [Recovering/Resolving]
  - Pharyngeal swelling [Recovering/Resolving]
  - Swelling face [Recovering/Resolving]
  - Fear [Unknown]
  - Fatigue [Unknown]
  - Immediate post-injection reaction [Recovering/Resolving]

NARRATIVE: CASE EVENT DATE: 20240101
